FAERS Safety Report 7934670-8 (Version None)
Quarter: 2011Q4

REPORT INFORMATION
  Report Type: 
  Country: None (occurrence: None)
  Receive Date: 20111116
  Receipt Date: 20111105
  Transmission Date: 20120403
  Serious: Yes (Other)
  Sender: FDA-Public Use
  Company Number: 2011SP052231

PATIENT
  Sex: Male

DRUGS (2)
  1. RIBAVIRIN [Suspect]
     Indication: HEPATITIS C
     Dates: start: 20020101, end: 20020601
  2. PEGASYS [Suspect]
     Indication: HEPATITIS C
     Dates: start: 20020101, end: 20020601

REACTIONS (1)
  - HEPATIC CIRRHOSIS [None]
